FAERS Safety Report 9360785 (Version 1)
Quarter: 2013Q3

REPORT INFORMATION
  Report Type: Spontaneous
  Country: US (occurrence: None)
  Receive Date: 20130620
  Receipt Date: 20130620
  Transmission Date: 20140515
  Serious: Yes (Hospitalization)
  Sender: FDA-Public Use
  Company Number: None

PATIENT
  Age: 61 Year
  Sex: Male
  Weight: 183 kg

DRUGS (3)
  1. GEMCITABINE [Suspect]
     Indication: TRANSITIONAL CELL CARCINOMA
     Dosage: IV EVERY 2 WEEKS X 3
     Dates: start: 201203, end: 20130409
  2. NEULASTA [Suspect]
     Indication: NEOPLASM MALIGNANT
     Dosage: SUB Q POST CHEM
     Dates: start: 201303
  3. CISPLATIN [Suspect]

REACTIONS (6)
  - Nausea [None]
  - Vomiting [None]
  - Hiccups [None]
  - Dehydration [None]
  - Hyperkalaemia [None]
  - Renal failure [None]
